FAERS Safety Report 4286853-9 (Version None)
Quarter: 2004Q1

REPORT INFORMATION
  Report Type: 
  Country: None (occurrence: None)
  Receive Date: 20040204
  Receipt Date: 20040122
  Transmission Date: 20041129
  Serious: Yes (Hospitalization)
  Sender: FDA-Public Use
  Company Number: 2004001334

PATIENT
  Age: 82 Year
  Sex: Male
  Weight: 85 kg

DRUGS (7)
  1. SERLAIN (SERTRALINE) [Suspect]
     Indication: DEPRESSION
     Dosage: 50 MG (DAILY), ORAL
     Route: 048
     Dates: start: 19980101, end: 20031226
  2. BEFACT FORTE (PYRIDOXINE HYDROCHLORIDE, CYANOCOBALAMIN, RIBOFLAVIN, TH [Concomitant]
  3. METHYLPREDNISOLONE [Concomitant]
  4. RISPERIDONE [Concomitant]
  5. FOLIC ACID [Concomitant]
  6. LACTULOSE [Concomitant]
  7. SERETIDE MITE (FLUTICASONE PROPIONATE, SALMETEROL XINAFOATE) [Concomitant]

REACTIONS (6)
  - ACTIVATED PARTIAL THROMBOPLASTIN TIME PROLONGED [None]
  - ECCHYMOSIS [None]
  - HAEMATOMA [None]
  - HAEMOGLOBIN DECREASED [None]
  - HAEMORRHAGE SUBCUTANEOUS [None]
  - PETECHIAE [None]
